FAERS Safety Report 9054631 (Version 1)
Quarter: 2013Q1

REPORT INFORMATION
  Report Type: Spontaneous
  Country: US (occurrence: US)
  Receive Date: 20130208
  Receipt Date: 20130208
  Transmission Date: 20140127
  Serious: Yes (Hospitalization)
  Sender: FDA-Public Use
  Company Number: US-BAYER-2013-014989

PATIENT
  Age: 43 Year
  Sex: Female
  Weight: 104.76 kg

DRUGS (6)
  1. YAZ [Suspect]
     Indication: PREMENSTRUAL SYNDROME
  2. ALBUTEROL [Concomitant]
  3. BUPROPION [Concomitant]
  4. IMITREX [Concomitant]
  5. DEPO MEDROL [Concomitant]
     Dosage: 80 MG, UNK
     Route: 030
  6. DROSPIRENONE W/ETHINYLESTRADIOL [Concomitant]
     Indication: DYSMENORRHOEA

REACTIONS (1)
  - Pulmonary embolism [None]
